FAERS Safety Report 7706939-3 (Version None)
Quarter: 2011Q3

REPORT INFORMATION
  Report Type: 
  Country: None (occurrence: None)
  Receive Date: 20110824
  Receipt Date: 20110818
  Transmission Date: 20111222
  Serious: Yes (Hospitalization)
  Sender: FDA-Public Use
  Company Number: FR-GLAXOSMITHKLINE-B0740639A

PATIENT
  Sex: Male

DRUGS (22)
  1. CIPROFLOXACIN [Concomitant]
     Route: 065
     Dates: start: 20110430
  2. CALCIPARINE [Concomitant]
     Route: 065
     Dates: start: 20110618
  3. ROCEPHIN [Concomitant]
     Indication: LUNG DISORDER
     Route: 065
     Dates: start: 20110430
  4. VITAMIN K TAB [Concomitant]
     Route: 065
     Dates: start: 20110618, end: 20110618
  5. MABTHERA [Concomitant]
     Indication: LYMPHOMA
     Route: 065
  6. PIPERACILLIN AND TAZOBACTAM [Concomitant]
     Indication: LUNG DISORDER
     Route: 065
  7. HEPARIN [Concomitant]
     Route: 065
     Dates: start: 20110430
  8. LOVENOX [Concomitant]
     Route: 065
  9. PAROXETINE HCL [Suspect]
     Indication: DEPRESSED MOOD
     Dosage: 1UNIT PER DAY
     Route: 048
     Dates: start: 20110520, end: 20110617
  10. RIFADIN [Suspect]
     Indication: MYCOBACTERIAL INFECTION
     Route: 048
     Dates: start: 20110610, end: 20110625
  11. MYAMBUTOL [Suspect]
     Indication: MYCOBACTERIAL INFECTION
     Dosage: 3UNIT PER DAY
     Route: 048
     Dates: start: 20110610, end: 20110625
  12. ZYVOX [Concomitant]
     Route: 065
     Dates: start: 20110525, end: 20110525
  13. INTUBATION [Concomitant]
     Dates: end: 20110604
  14. CEFTAZIDIME SODIUM [Concomitant]
     Route: 065
     Dates: start: 20110525, end: 20110525
  15. PERINDOPRIL ERBUMINE [Concomitant]
     Route: 065
     Dates: start: 20110518
  16. PREVISCAN [Concomitant]
     Route: 065
     Dates: start: 20110601, end: 20110618
  17. CORDARONE [Concomitant]
     Route: 065
  18. TIENAM [Suspect]
     Indication: MYCOBACTERIAL INFECTION
     Route: 042
     Dates: start: 20110610, end: 20110627
  19. RIMIFON [Suspect]
     Indication: MYCOBACTERIAL INFECTION
     Dosage: 2UNIT PER DAY
     Route: 048
     Dates: start: 20110610, end: 20110625
  20. BACTRIM [Concomitant]
     Route: 065
     Dates: start: 20110430
  21. COUMADIN [Concomitant]
     Route: 065
  22. FLAGYL [Concomitant]
     Route: 065
     Dates: start: 20110525, end: 20110525

REACTIONS (2)
  - LEUKOPENIA [None]
  - NEUTROPENIA [None]
